FAERS Safety Report 8404172-3 (Version None)
Quarter: 2012Q2

REPORT INFORMATION
  Report Type: 
  Country: None (occurrence: None)
  Receive Date: 20120601
  Receipt Date: 20120531
  Transmission Date: 20120825
  Serious: Yes (Other)
  Sender: FDA-Public Use
  Company Number: CHPA2012IT005730

PATIENT
  Sex: Female

DRUGS (4)
  1. XYZAL [Concomitant]
     Indication: URTICARIA
     Dosage: 1 DF, QD
  2. OTRIVIN [Suspect]
     Indication: NASAL DECONGESTION THERAPY
     Dosage: 1 DF, PRN
     Route: 045
     Dates: start: 20120218, end: 20120220
  3. CORTISONE ACETATE [Concomitant]
     Indication: URTICARIA
     Dosage: UNK, UNK
  4. ESTROGENS, COMBINATIONS WITH OTHER DRUGS [Concomitant]
     Indication: UTERINE FIBROSIS
     Dosage: UNK, UNK
     Route: 048

REACTIONS (3)
  - DRUG HYPERSENSITIVITY [None]
  - URTICARIA [None]
  - SYNCOPE [None]
